FAERS Safety Report 6477894-1 (Version None)
Quarter: 2009Q4

REPORT INFORMATION
  Report Type: 
  Country: None (occurrence: None)
  Receive Date: 20091203
  Receipt Date: 20091203
  Transmission Date: 20100525
  Serious: Yes (Other)
  Sender: FDA-Public Use
  Company Number: None

PATIENT
  Age: 60 Year
  Sex: Male
  Weight: 104.3273 kg

DRUGS (1)
  1. CIPROFLAXACIN [Suspect]
     Indication: PROSTATITIS
     Dosage: 400MG BID PO
     Route: 048
     Dates: start: 20090728, end: 20090731

REACTIONS (2)
  - SWELLING [None]
  - TENDON PAIN [None]
